FAERS Safety Report 5359430-6 (Version None)
Quarter: 2007Q2

REPORT INFORMATION
  Report Type: 
  Country: None (occurrence: None)
  Receive Date: 20070615
  Receipt Date: 20070605
  Transmission Date: 20071010
  Serious: Yes (Death, Hospitalization, Disabling, Other)
  Sender: FDA-Public Use
  Company Number: BR-PFIZER INC-2007038371

PATIENT
  Age: 76 Year
  Sex: Female

DRUGS (3)
  1. NEURONTIN [Suspect]
     Indication: NEURALGIA
     Route: 048
  2. MAXCEF [Suspect]
     Indication: INFECTION
  3. CHEMOTHERAPY NOS [Concomitant]

REACTIONS (11)
  - ANXIETY [None]
  - CONFUSIONAL STATE [None]
  - COORDINATION ABNORMAL [None]
  - IMMUNOSUPPRESSION [None]
  - MALAISE [None]
  - MALIGNANT NEOPLASM PROGRESSION [None]
  - MUSCULAR WEAKNESS [None]
  - PNEUMONIA [None]
  - SLEEP DISORDER [None]
  - SOPOR [None]
  - URINARY TRACT INFECTION [None]
